FAERS Safety Report 9270848 (Version 1)
Quarter: 2013Q2

REPORT INFORMATION
  Report Type: Spontaneous
  Country: US (occurrence: US)
  Receive Date: 20130505
  Receipt Date: 20130505
  Transmission Date: 20140414
  Serious: No
  Sender: FDA-Public Use
  Company Number: US-009507513-1304USA015868

PATIENT
  Age: 50 Year
  Sex: Female

DRUGS (1)
  1. DULERA [Suspect]
     Dosage: UNK
     Dates: start: 20130410

REACTIONS (2)
  - Swelling face [Unknown]
  - Urticaria [Unknown]
